FAERS Safety Report 7417007-2 (Version None)
Quarter: 2011Q2

REPORT INFORMATION
  Report Type: 
  Country: None (occurrence: None)
  Receive Date: 20110406
  Receipt Date: 20110324
  Transmission Date: 20111010
  Serious: Yes (Other)
  Sender: FDA-Public Use
  Company Number: 1000019776

PATIENT
  Sex: Female
  Weight: 2.97 kg

DRUGS (3)
  1. CITALOPRAM HYDROBROMIDE [Suspect]
     Dosage: 10-20 MG,TRANSPLACENTAL
     Route: 064
     Dates: end: 20101107
  2. L-THYROXIN (LEVOTHYROXINE SODIUM) (TABLETS) (LEVOTHYROXINE SODIUM) [Concomitant]
  3. FOLIO FORTE (FOLIC ACID) (FOLIC ACID) [Concomitant]

REACTIONS (2)
  - MATERNAL DRUGS AFFECTING FOETUS [None]
  - SMALL FOR DATES BABY [None]
